FAERS Safety Report 25439152 (Version 2)
Quarter: 2025Q3

REPORT INFORMATION
  Report Type: Spontaneous
  Country: SA (occurrence: SA)
  Receive Date: 20250616
  Receipt Date: 20250702
  Transmission Date: 20251021
  Serious: Yes (Hospitalization, Other)
  Sender: GLENMARK
  Company Number: SA-MLMSERVICE-20250528-PI522740-00306-1

PATIENT
  Age: 27 Year
  Sex: Male
  Weight: 72 kg

DRUGS (2)
  1. TACROLIMUS [Suspect]
     Active Substance: TACROLIMUS
     Indication: Immunosuppressant drug therapy
     Dosage: 2 MILLIGRAM, BID, MAINTAINED THERAPEUTIC LEVELS WITHIN STANDARD TARGET RANGE FOR POST-TRANSPLANT PAT
     Route: 048
  2. APIXABAN [Concomitant]
     Active Substance: APIXABAN
     Indication: Cardiac ventricular thrombosis
     Route: 065

REACTIONS (1)
  - Guillain-Barre syndrome [Recovered/Resolved]
